FAERS Safety Report 5722197-3 (Version None)
Quarter: 2008Q2

REPORT INFORMATION
  Report Type: 
  Country: None (occurrence: None)
  Receive Date: 20080429
  Receipt Date: 20070509
  Transmission Date: 20081010
  Serious: Yes (Other)
  Sender: FDA-Public Use
  Company Number: US-ASTRAZENECA-2007UW11210

PATIENT
  Age: 19 Year
  Sex: Female
  Weight: 45.4 kg

DRUGS (2)
  1. NEXIUM [Suspect]
     Indication: GASTROINTESTINAL HAEMORRHAGE
     Route: 048
     Dates: start: 20070101
  2. NEXIUM [Suspect]
     Route: 048
     Dates: start: 20070101

REACTIONS (3)
  - DYSPHAGIA [None]
  - DYSPNOEA [None]
  - WEIGHT DECREASED [None]
